FAERS Safety Report 9125553 (Version 1)
Quarter: 2013Q1

REPORT INFORMATION
  Report Type: Spontaneous
  Country: GB (occurrence: GB)
  Receive Date: 20130117
  Receipt Date: 20130117
  Transmission Date: 20140127
  Serious: Yes (Other)
  Sender: FDA-Public Use
  Company Number: GB-ASTRAZENECA-2013SE02601

PATIENT
  Age: 57 Year
  Sex: Male
  Weight: 89 kg

DRUGS (2)
  1. ZOLADEX LA [Suspect]
     Indication: PROSTATE CANCER STAGE III
     Route: 058
     Dates: start: 20121102
  2. TAMSULOSIN HYDROCHLORIDE [Concomitant]

REACTIONS (2)
  - Chills [Not Recovered/Not Resolved]
  - Feeling cold [Unknown]
